FAERS Safety Report 10981320 (Version 2)
Quarter: 2015Q2

REPORT INFORMATION
  Report Type: Spontaneous
  Country: US (occurrence: US)
  Receive Date: 20150402
  Receipt Date: 20150525
  Transmission Date: 20150821
  Serious: No
  Sender: FDA-Public Use
  Company Number: US-JNJFOC-20140817571

PATIENT
  Age: 33 Year
  Sex: Male
  Weight: 63.5 kg

DRUGS (2)
  1. IMODIUM MULTI-SYMPTOM RELIEF [Suspect]
     Active Substance: DIMETHICONE\LOPERAMIDE HYDROCHLORIDE
     Route: 048
  2. IMODIUM MULTI-SYMPTOM RELIEF [Suspect]
     Active Substance: DIMETHICONE\LOPERAMIDE HYDROCHLORIDE
     Indication: GASTROENTERITIS VIRAL
     Route: 048
     Dates: start: 20140806, end: 20140808

REACTIONS (4)
  - Product use issue [Unknown]
  - Product size issue [Unknown]
  - Incorrect dose administered [Unknown]
  - Product difficult to swallow [Recovered/Resolved]

NARRATIVE: CASE EVENT DATE: 20140806
